FAERS Safety Report 7903613-5 (Version None)
Quarter: 2011Q4

REPORT INFORMATION
  Report Type: 
  Country: None (occurrence: None)
  Receive Date: 20111109
  Receipt Date: 20111103
  Transmission Date: 20120403
  Serious: Yes (Death)
  Sender: FDA-Public Use
  Company Number: US-GILEAD-2011-0045732

PATIENT
  Sex: Male

DRUGS (19)
  1. ASPIRIN [Concomitant]
  2. PRAVASTATIN [Concomitant]
  3. FISH OIL [Concomitant]
  4. OXYGEN [Concomitant]
  5. PROBENECID [Concomitant]
  6. COLCHICINE [Concomitant]
  7. POTASSIUM CHLORIDE [Concomitant]
  8. SILDENAFIL [Concomitant]
  9. HYDROCORTISONE [Concomitant]
  10. LETAIRIS [Suspect]
     Dosage: 5 UNK, UNK
     Route: 048
     Dates: start: 20101028
  11. GLUCOSAMINE [Concomitant]
  12. SPIRIVA [Concomitant]
  13. ADVAIR DISKUS 100/50 [Concomitant]
  14. FUROSEMIDE [Concomitant]
  15. METOLAZONE [Concomitant]
  16. VITAMIN E                          /00110501/ [Concomitant]
  17. LETAIRIS [Suspect]
     Indication: PULMONARY HYPERTENSION
     Dosage: 10 MG, UNK
     Route: 048
     Dates: start: 20110912, end: 20110928
  18. LORAZEPAM [Concomitant]
  19. SPIRONOLACTONE [Concomitant]

REACTIONS (1)
  - DISEASE PROGRESSION [None]
